FAERS Safety Report 6270554-1 (Version None)
Quarter: 2009Q3

REPORT INFORMATION
  Report Type: 
  Country: None (occurrence: None)
  Receive Date: 20090716
  Receipt Date: 20090707
  Transmission Date: 20100115
  Serious: Yes (Death, Other)
  Sender: FDA-Public Use
  Company Number: GB-PFIZER INC-2009192921

PATIENT
  Age: 75 Year

DRUGS (2)
  1. SUNITINIB MALATE [Suspect]
     Indication: RENAL CANCER METASTATIC
     Dosage: UNK
     Dates: start: 20070701
  2. INTERFERON ALFA-2B [Suspect]
     Indication: DRUG USE FOR UNKNOWN INDICATION

REACTIONS (26)
  - ABDOMINAL MASS [None]
  - AGITATION [None]
  - ASTHENIA [None]
  - CIRCULATORY COLLAPSE [None]
  - CONFUSIONAL STATE [None]
  - DECREASED APPETITE [None]
  - DIARRHOEA [None]
  - DISEASE PROGRESSION [None]
  - FACE OEDEMA [None]
  - FATIGUE [None]
  - INCONTINENCE [None]
  - LOWER RESPIRATORY TRACT INFECTION [None]
  - LYMPHANGIOSIS CARCINOMATOSA [None]
  - MOUTH ULCERATION [None]
  - MUSCLE ATROPHY [None]
  - ORAL CANDIDIASIS [None]
  - ORAL PAIN [None]
  - PALLOR [None]
  - PETECHIAE [None]
  - PNEUMONIA ASPIRATION [None]
  - RENAL CELL CARCINOMA [None]
  - RESPIRATION ABNORMAL [None]
  - SEPSIS [None]
  - SOMNOLENCE [None]
  - URINE ODOUR ABNORMAL [None]
  - WEIGHT DECREASED [None]
